FAERS Safety Report 14188444 (Version 1)
Quarter: 2017Q4

REPORT INFORMATION
  Report Type: Spontaneous
  Country: US (occurrence: US)
  Receive Date: 20171114
  Receipt Date: 20171114
  Transmission Date: 20180321
  Serious: No
  Sender: FDA-Public Use
  Company Number: US-BAUSCH-BL-2016-028189

PATIENT
  Sex: Female

DRUGS (1)
  1. APRISO [Suspect]
     Active Substance: MESALAMINE
     Indication: PRODUCT USED FOR UNKNOWN INDICATION
     Route: 065
     Dates: end: 20161102

REACTIONS (9)
  - Pigmentation disorder [Unknown]
  - Abdominal distension [Unknown]
  - Condition aggravated [Unknown]
  - Pruritus generalised [Unknown]
  - Malaise [Unknown]
  - Fatigue [Unknown]
  - Drug hypersensitivity [Unknown]
  - Rash vesicular [Unknown]
  - Nausea [Unknown]
